FAERS Safety Report 11046870 (Version 1)
Quarter: 2015Q2

REPORT INFORMATION
  Report Type: Spontaneous
  Country: GB (occurrence: GB)
  Receive Date: 20150420
  Receipt Date: 20150420
  Transmission Date: 20150821
  Serious: Yes (Disabling)
  Sender: FDA-Public Use
  Company Number: GB-TEVA-555020ACC

PATIENT
  Age: 40 Year
  Sex: Female
  Weight: 70 kg

DRUGS (2)
  1. LORATADINE. [Suspect]
     Active Substance: LORATADINE
  2. BECLOMETASONE [Concomitant]
     Active Substance: BECLOMETHASONE DIPROPIONATE
     Dosage: 4 DOSAGE FORMS DAILY; TWO PUFFS
     Dates: start: 20130704

REACTIONS (1)
  - Arthralgia [Recovered/Resolved]

NARRATIVE: CASE EVENT DATE: 20140401
